FAERS Safety Report 5138464-0 (Version None)
Quarter: 2006Q4

REPORT INFORMATION
  Report Type: 
  Country: None (occurrence: None)
  Receive Date: 20061030
  Receipt Date: 20060224
  Transmission Date: 20070319
  Serious: No
  Sender: FDA-Public Use
  Company Number: NQC2006-848

PATIENT
  Age: 66 Year
  Sex: Male

DRUGS (1)
  1. ADVAIR HFA [Suspect]
     Indication: DRUG USE FOR UNKNOWN INDICATION
     Route: 055

REACTIONS (4)
  - CONSTIPATION [None]
  - DEHYDRATION [None]
  - DRY EYE [None]
  - HEART RATE INCREASED [None]
